FAERS Safety Report 7284906-4 (Version None)
Quarter: 2011Q1

REPORT INFORMATION
  Report Type: 
  Country: None (occurrence: None)
  Receive Date: 20110210
  Receipt Date: 20101229
  Transmission Date: 20110831
  Serious: Yes (Life-Threatening, Hospitalization)
  Sender: FDA-Public Use
  Company Number: US-BAYER-200939041NA

PATIENT
  Sex: Female

DRUGS (6)
  1. ASPIRIN [Concomitant]
     Dosage: DAILY LOW DOSE
  2. YAZ [Suspect]
     Indication: CONTRACEPTION
     Dosage: UNK
  3. YASMIN [Suspect]
     Indication: MENORRHAGIA
     Dosage: UNK
     Dates: start: 20061201, end: 20070501
  4. FASTIN [Concomitant]
     Indication: MEDICAL DIET
  5. COLACE [Concomitant]
  6. IRON SULFATETHIAMIN COMPOUND TAB [Concomitant]

REACTIONS (11)
  - DEEP VEIN THROMBOSIS [None]
  - HYPERHIDROSIS [None]
  - PELVIC VENOUS THROMBOSIS [None]
  - OEDEMA PERIPHERAL [None]
  - PYREXIA [None]
  - PAIN IN EXTREMITY [None]
  - DYSPNOEA [None]
  - GALLBLADDER NON-FUNCTIONING [None]
  - PULMONARY EMBOLISM [None]
  - ABDOMINAL PAIN [None]
  - FATIGUE [None]
